FAERS Safety Report 18752712 (Version 1)
Quarter: 2021Q1

REPORT INFORMATION
  Report Type: Spontaneous
  Country: CA (occurrence: CA)
  Receive Date: 20210118
  Receipt Date: 20210118
  Transmission Date: 20210419
  Serious: Yes (Other)
  Sender: FDA-Public Use
  Company Number: CA-PURDUE-USA-2020-0197506

PATIENT
  Sex: Male

DRUGS (1)
  1. OXYCONTIN [Suspect]
     Active Substance: OXYCODONE HYDROCHLORIDE
     Indication: PRODUCT USED FOR UNKNOWN INDICATION
     Dosage: UNKNOWN
     Route: 048

REACTIONS (8)
  - Fear [Unknown]
  - Amnesia [Unknown]
  - Suicidal ideation [Unknown]
  - Loss of consciousness [Unknown]
  - Drug dependence [Unknown]
  - Suicide attempt [Unknown]
  - Overdose [Unknown]
  - Impaired driving ability [Unknown]
